FAERS Safety Report 25585660 (Version 1)
Quarter: 2025Q3

REPORT INFORMATION
  Report Type: Spontaneous
  Country: US (occurrence: US)
  Receive Date: 20250721
  Receipt Date: 20250721
  Transmission Date: 20251020
  Serious: Yes (Other)
  Sender: PFIZER
  Company Number: US-PFIZER INC-202500143935

PATIENT
  Age: 72 Year
  Sex: Female
  Weight: 68.04 kg

DRUGS (10)
  1. IBRANCE [Suspect]
     Active Substance: PALBOCICLIB
     Indication: Breast cancer female
     Route: 048
     Dates: start: 202503
  2. KISQALI [Suspect]
     Active Substance: RIBOCICLIB SUCCINATE
     Indication: Neoplasm malignant
     Dosage: 200MG TABLETS PER DAY, TAKING A TOTAL OF 600MG
     Route: 048
     Dates: start: 202408
  3. NATEGLINIDE [Concomitant]
     Active Substance: NATEGLINIDE
     Indication: Diabetes mellitus
     Dosage: 120MG, 3 TIMES A DAY
     Route: 048
  4. CHOLECALCIFEROL [Concomitant]
     Active Substance: CHOLECALCIFEROL
     Dosage: 25 UG, ONE TABLET A DAY
     Route: 048
     Dates: start: 202408
  5. IRON [Concomitant]
     Active Substance: IRON
     Indication: Anaemia
     Dosage: 65MG, 1 TABLET A DAY
     Route: 048
     Dates: start: 202405
  6. LOSARTAN [Concomitant]
     Active Substance: LOSARTAN
     Indication: Blood pressure measurement
     Route: 048
  7. POTASSIUM [Concomitant]
     Active Substance: POTASSIUM
     Route: 048
  8. HYDROCHLOROTHIAZIDE [Concomitant]
     Active Substance: HYDROCHLOROTHIAZIDE
     Indication: Blood pressure measurement
  9. GLIPIZIDE [Concomitant]
     Active Substance: GLIPIZIDE
     Indication: Diabetes mellitus
     Dates: start: 202501, end: 202505
  10. FULVESTRANT [Concomitant]
     Active Substance: FULVESTRANT
     Dosage: INJECTION ONCE A MONTH.

REACTIONS (3)
  - Liver injury [Unknown]
  - Pancreatic disorder [Unknown]
  - Intentional product misuse [Unknown]
